FAERS Safety Report 8150584-5 (Version None)
Quarter: 2012Q1

REPORT INFORMATION
  Report Type: 
  Country: None (occurrence: None)
  Receive Date: 20120220
  Receipt Date: 20120104
  Transmission Date: 20120608
  Serious: Yes (Death)
  Sender: FDA-Public Use
  Company Number: US-COVIDIEN/TYCO HEALTHCARE/MALLINCKRODT-T201200415

PATIENT
  Age: 66 Year
  Sex: Male

DRUGS (6)
  1. HYDROCODONE BITARTRATE AND ACETAMINOPHEN [Suspect]
  2. MIRTAZAPINE [Suspect]
  3. OXYMORPHONE [Suspect]
  4. DIAZEPAM [Suspect]
  5. TRAZODONE HYDROCHLORIDE [Suspect]
  6. METHAMPHETAMINE HYDROCHLORIDE [Suspect]

REACTIONS (2)
  - CARDIO-RESPIRATORY ARREST [None]
  - DRUG ABUSE [None]
